FAERS Safety Report 10586524 (Version 2)
Quarter: 2015Q1

REPORT INFORMATION
  Report Type: Report from Study
  Country: US (occurrence: US)
  Receive Date: 20141117
  Receipt Date: 20150223
  Transmission Date: 20150720
  Serious: Yes (Hospitalization, Other)
  Sender: FDA-Public Use
  Company Number: US-BIOGENIDEC-2014BI117577

PATIENT
  Age: 53 Year
  Sex: Female

DRUGS (2)
  1. ZOLOFT [Concomitant]
     Active Substance: SERTRALINE HYDROCHLORIDE
  2. TYSABRI [Suspect]
     Active Substance: NATALIZUMAB
     Indication: MULTIPLE SCLEROSIS
     Route: 042
     Dates: start: 20130913, end: 20140709

REACTIONS (4)
  - Petit mal epilepsy [Unknown]
  - Overdose [Unknown]
  - Suicide attempt [Unknown]
  - Mental disorder [Unknown]

NARRATIVE: CASE EVENT DATE: 20140709
